FAERS Safety Report 7554705-4 (Version None)
Quarter: 2011Q2

REPORT INFORMATION
  Report Type: 
  Country: None (occurrence: None)
  Receive Date: 20110615
  Receipt Date: 20110615
  Transmission Date: 20111010
  Serious: No
  Sender: FDA-Public Use
  Company Number: None

PATIENT
  Age: 47 Year
  Sex: Male

DRUGS (1)
  1. D-HIST JR [Suspect]
     Dates: start: 20100501, end: 20100515

REACTIONS (12)
  - PANCREATITIS [None]
  - WEIGHT DECREASED [None]
  - HEPATITIS [None]
  - RASH [None]
  - OESOPHAGEAL ADENOCARCINOMA [None]
  - CHOLELITHIASIS [None]
  - HEPATIC STEATOSIS [None]
  - CHOLESTASIS [None]
  - DRUG INEFFECTIVE [None]
  - BARRETT'S OESOPHAGUS [None]
  - CHOLECYSTITIS [None]
  - LIVER INJURY [None]
